FAERS Safety Report 6709313-1 (Version None)
Quarter: 2010Q2

REPORT INFORMATION
  Report Type: 
  Country: None (occurrence: None)
  Receive Date: 20100426
  Receipt Date: 20090322
  Transmission Date: 20101027
  Serious: Yes (Other)
  Sender: FDA-Public Use
  Company Number: TEST00209001785

PATIENT
  Age: 44 Year
  Sex: Male
  Weight: 79.5 kg

DRUGS (3)
  1. ANDROGEL [Suspect]
     Indication: DRUG USE FOR UNKNOWN INDICATION
     Dosage: 5 GRAM (S) QD TRANSCUTANEOUS DAILY DOSE: 5 GRAM(S) VIA PUMP
  2. LORATADINE [Concomitant]
  3. ASTHMA INHALER (ASTHMA INHALER) [Concomitant]

REACTIONS (1)
  - PROSTATE CANCER [None]
